FAERS Safety Report 4375690-2 (Version None)
Quarter: 2004Q2

REPORT INFORMATION
  Report Type: 
  Country: None (occurrence: None)
  Receive Date: 20040607
  Receipt Date: 20040525
  Transmission Date: 20050107
  Serious: Yes (Other)
  Sender: FDA-Public Use
  Company Number: HQWYE120727MAY04

PATIENT
  Age: 66 Year
  Sex: Female
  Weight: 81.72 kg

DRUGS (2)
  1. EFFEXOR XR [Suspect]
     Indication: MENTAL DISORDER
     Dosage: SEE IMAGE
     Route: 048
     Dates: end: 20031101
  2. LORTAB [Suspect]
     Indication: BACK PAIN
     Dosage: ONE TABLET AS NEEDED FOR PAIN (TOOK TABLET IN AM PRIOR TO FALL)
     Dates: start: 20021001

REACTIONS (8)
  - ANOSMIA [None]
  - BALANCE DISORDER [None]
  - CONCUSSION [None]
  - DIZZINESS [None]
  - FALL [None]
  - FEELING ABNORMAL [None]
  - NAUSEA [None]
  - SYNCOPE [None]
